FAERS Safety Report 16673730 (Version 1)
Quarter: 2019Q3

REPORT INFORMATION
  Report Type: Spontaneous
  Country: FR (occurrence: FR)
  Receive Date: 20190806
  Receipt Date: 20190806
  Transmission Date: 20191004
  Serious: Yes (Death)
  Sender: FDA-Public Use
  Company Number: FR-BAYER-2019-145227

PATIENT
  Age: 81 Year
  Sex: Male
  Weight: 64.5 kg

DRUGS (2)
  1. CIFLOX [Suspect]
     Active Substance: CIPROFLOXACIN
     Indication: OSTEITIS
     Dosage: 1500 MG, QD
     Route: 042
     Dates: start: 20190710, end: 20190717
  2. CEFTAZIDIME. [Suspect]
     Active Substance: CEFTAZIDIME
     Indication: OSTEITIS
     Dosage: 6 G, QD
     Route: 042
     Dates: start: 20190620, end: 20190717

REACTIONS (1)
  - Acute kidney injury [Fatal]

NARRATIVE: CASE EVENT DATE: 20190717
